FAERS Safety Report 7416153-7 (Version None)
Quarter: 2011Q2

REPORT INFORMATION
  Report Type: 
  Country: None (occurrence: None)
  Receive Date: 20110414
  Receipt Date: 20101101
  Transmission Date: 20111010
  Serious: Yes (Hospitalization)
  Sender: FDA-Public Use
  Company Number: US-BAYER-200942922NA

PATIENT
  Age: 20 Year
  Sex: Female
  Weight: 79.545 kg

DRUGS (8)
  1. TRAMADOL [Concomitant]
     Dosage: 50 MG, UNK
  2. YAZ [Suspect]
     Indication: CONTRACEPTION
     Route: 048
     Dates: start: 20090201, end: 20090301
  3. MEDROXYPROGESTERONE [Concomitant]
     Dosage: 10 MG, UNK
  4. METFORMIN [Concomitant]
  5. YASMIN [Suspect]
     Indication: CONTRACEPTION
     Route: 048
     Dates: start: 20090201, end: 20090301
  6. METFORMIN HCL [Concomitant]
     Dosage: 500 MG, UNK
  7. HYDROCODONE BITARTRATE AND ACETAMINOPHEN [Concomitant]
     Dosage: 500 MG, UNK
  8. OCELLA [Suspect]
     Indication: CONTRACEPTION
     Dates: start: 20090201, end: 20090301

REACTIONS (5)
  - PULMONARY EMBOLISM [None]
  - BACK PAIN [None]
  - NAUSEA [None]
  - DYSPNOEA [None]
  - PLEURITIC PAIN [None]
